FAERS Safety Report 9855171 (Version 1)
Quarter: 2014Q1

REPORT INFORMATION
  Report Type: Spontaneous
  Country: IE (occurrence: None)
  Receive Date: 20140127
  Receipt Date: 20140127
  Transmission Date: 20141002
  Serious: No
  Sender: FDA-Public Use
  Company Number: 2014IE00059

PATIENT
  Sex: 0

DRUGS (1)
  1. GEMCITABINE (GEMCITABINE) INJECTION [Suspect]
     Indication: PRODUCT USED FOR UNKNOWN INDICATION

REACTIONS (1)
  - Eosinophilic pneumonia [None]
